FAERS Safety Report 5936277-0 (Version None)
Quarter: 2008Q4

REPORT INFORMATION
  Report Type: 
  Country: None (occurrence: None)
  Receive Date: 20081028
  Receipt Date: 20081015
  Transmission Date: 20090506
  Serious: Yes (Hospitalization)
  Sender: FDA-Public Use
  Company Number: 2008002722

PATIENT
  Age: 64 Year
  Sex: Female
  Weight: 48.5 kg

DRUGS (13)
  1. ERLOTINIB (ERLOTINIB) (TABLET) (ERLOTINIB) [Suspect]
     Indication: NON-SMALL CELL LUNG CANCER
     Dosage: (150 MG, QD), ORAL
     Route: 048
     Dates: start: 20080902
  2. PEMETREXED DISODIUM (PEMETREXED) (INJECTION FOR INFUSION) [Suspect]
     Dosage: (500 MG/M2), INTRAVENOUS
     Route: 042
     Dates: start: 20080901
  3. FOLIC ACID [Concomitant]
  4. VITAMIN B12 [Concomitant]
  5. DEXAMETHASONE TAB [Concomitant]
  6. FUROSEMIDE [Concomitant]
  7. SPIRONOLACTONE [Concomitant]
  8. METHYLPREDNISOLONE 16MG TAB [Concomitant]
  9. ACETYLCYSTEINE [Concomitant]
  10. MEGESTROL ACETATE [Concomitant]
  11. EPERISONE HYDROCHLORIDE (EPERISONE HYDROCHLORIDE) [Concomitant]
  12. RANITIDINE HYDROCHLORIDE [Concomitant]
  13. TALNIFLUMATE [Concomitant]

REACTIONS (2)
  - INCISION SITE PAIN [None]
  - THORACIC VERTEBRAL FRACTURE [None]
